FAERS Safety Report 10305686 (Version 2)
Quarter: 2014Q3

REPORT INFORMATION
  Report Type: Spontaneous
  Country: US (occurrence: None)
  Receive Date: 20140711
  Receipt Date: 20140725
  Transmission Date: 20150326
  Serious: Yes (Hospitalization)
  Sender: FDA-Public Use
  Company Number: UNT-2014-002812

PATIENT
  Age: 43 Year
  Sex: Female
  Weight: 68 kg

DRUGS (3)
  1. REMODULIN [Suspect]
     Active Substance: TREPROSTINIL
     Indication: COR PULMONALE CHRONIC
     Route: 041
     Dates: start: 20130429
  2. WARFARIN (WARFARIN) [Concomitant]
     Active Substance: WARFARIN
  3. ADCIRCA [Concomitant]
     Active Substance: TADALAFIL

REACTIONS (1)
  - Fluid retention [None]

NARRATIVE: CASE EVENT DATE: 20140529
